FAERS Safety Report 13628655 (Version 3)
Quarter: 2017Q3

REPORT INFORMATION
  Report Type: Spontaneous
  Country: JP (occurrence: JP)
  Receive Date: 20170607
  Receipt Date: 20170705
  Transmission Date: 20171127
  Serious: Yes (Other)
  Sender: FDA-Public Use
  Company Number: JP-JNJFOC-20170602346

PATIENT
  Age: 80 Year
  Sex: Male

DRUGS (12)
  1. BEZAFIBRATE [Concomitant]
     Active Substance: BEZAFIBRATE
     Indication: HYPERLIPIDAEMIA
     Route: 048
     Dates: end: 2017
  2. GLIMEPIRIDE. [Concomitant]
     Active Substance: GLIMEPIRIDE
     Route: 048
     Dates: end: 2017
  3. APLEWAY [Concomitant]
     Active Substance: TOFOGLIFLOZIN
     Indication: DIABETES MELLITUS
     Route: 048
     Dates: start: 20170404, end: 20170509
  4. REBAMIPIDE [Concomitant]
     Active Substance: REBAMIPIDE
     Indication: GASTRIC MUCOSAL LESION
     Route: 048
     Dates: start: 20170324, end: 20170512
  5. CELECOX [Concomitant]
     Active Substance: CELECOXIB
     Indication: LUMBAR SPINAL STENOSIS
     Route: 048
     Dates: start: 20170324, end: 20170512
  6. SUINY [Concomitant]
     Active Substance: ANAGLIPTIN
     Indication: DIABETES MELLITUS
     Route: 048
     Dates: end: 2017
  7. ADALAT [Concomitant]
     Active Substance: NIFEDIPINE
     Route: 048
     Dates: end: 2017
  8. TRAMCET [Suspect]
     Active Substance: ACETAMINOPHEN\TRAMADOL
     Indication: PAIN
     Route: 048
     Dates: start: 20170509, end: 20170512
  9. DOMPERIDONE [Concomitant]
     Active Substance: DOMPERIDONE
     Indication: DIABETES MELLITUS
     Route: 048
     Dates: start: 20170509, end: 20170512
  10. ADALAT [Concomitant]
     Active Substance: NIFEDIPINE
     Route: 048
     Dates: end: 2017
  11. EPADEL [Concomitant]
     Active Substance: ICOSAPENT
     Indication: HYPERLIPIDAEMIA
     Route: 048
     Dates: end: 2017
  12. ALLOPURINOL. [Concomitant]
     Active Substance: ALLOPURINOL
     Route: 048
     Dates: end: 2017

REACTIONS (3)
  - Tremor [Recovered/Resolved]
  - Acute kidney injury [Unknown]
  - Hepatic function abnormal [Recovered/Resolved]

NARRATIVE: CASE EVENT DATE: 20170512
